FAERS Safety Report 8925353 (Version 2)
Quarter: 2013Q1

REPORT INFORMATION
  Report Type: Spontaneous
  Country: GB (occurrence: GB)
  Receive Date: 20121126
  Receipt Date: 20130116
  Transmission Date: 20140127
  Serious: Yes (Death, Other)
  Sender: FDA-Public Use
  Company Number: GB-MPIJNJ-2012-08260

PATIENT
  Sex: 0

DRUGS (7)
  1. VELCADE [Suspect]
     Indication: PLASMA CELL MYELOMA
     Dosage: 2.4 MG, UNK
     Route: 042
     Dates: start: 20120814, end: 20120829
  2. FINASTERIDE [Concomitant]
     Indication: BENIGN PROSTATIC HYPERPLASIA
     Dosage: 5 MG, UNK
  3. DOXAZOSIN                          /00639302/ [Concomitant]
     Indication: HYPERTENSION
     Dosage: 12 MG, UNK
  4. CABERGOLINE [Concomitant]
     Indication: PROLACTINOMA
     Dosage: 0.25 MG, UNK
  5. LEVOTHYROXINE [Concomitant]
     Indication: HYPOTHYROIDISM
     Dosage: 100 UG
  6. CLEXANE [Concomitant]
     Dosage: 40 MG, UNK
     Dates: start: 20120111, end: 20120305
  7. AMLODIPINE [Concomitant]
     Indication: HYPERTENSION
     Dosage: 5 MG, UNK

REACTIONS (5)
  - Renal failure [Fatal]
  - Plasma cell myeloma [Fatal]
  - Device related infection [Unknown]
  - Confusional state [Unknown]
  - Pancytopenia [Unknown]
